FAERS Safety Report 8343133-X (Version None)
Quarter: 2012Q2

REPORT INFORMATION
  Report Type: 
  Country: None (occurrence: None)
  Receive Date: 20120504
  Receipt Date: 20120504
  Transmission Date: 20120825
  Serious: Yes (Other)
  Sender: FDA-Public Use
  Company Number: None

PATIENT
  Sex: Male
  Weight: 75.1 kg

DRUGS (2)
  1. FELBATOL [Suspect]
     Indication: CEREBRAL PALSY
     Dosage: 6ML BID PO
     Route: 048
     Dates: start: 20070701
  2. FELBATOL [Suspect]
     Indication: EPILEPSY
     Dosage: 6ML BID PO
     Route: 048
     Dates: start: 20070701

REACTIONS (5)
  - DYSKINESIA [None]
  - DEPRESSED LEVEL OF CONSCIOUSNESS [None]
  - PRODUCT SUBSTITUTION ISSUE [None]
  - MUSCLE TWITCHING [None]
  - DRUG INEFFECTIVE [None]
